FAERS Safety Report 17895356 (Version 2)
Quarter: 2020Q3

REPORT INFORMATION
  Report Type: Spontaneous
  Country: US (occurrence: US)
  Receive Date: 20200615
  Receipt Date: 20200807
  Transmission Date: 20201103
  Serious: Yes (Other)
  Sender: FDA-Public Use
  Company Number: US-BAUSCH-BL-2020-016950

PATIENT
  Age: 64 Year
  Sex: Male
  Weight: 81.72 kg

DRUGS (3)
  1. FIRDAPSE [Suspect]
     Active Substance: AMIFAMPRIDINE PHOSPHATE
     Indication: PRODUCT USE IN UNAPPROVED INDICATION
  2. FIRDAPSE [Suspect]
     Active Substance: AMIFAMPRIDINE PHOSPHATE
     Indication: MYASTHENIC SYNDROME
     Route: 048
     Dates: start: 2018
  3. MESTINON [Suspect]
     Active Substance: PYRIDOSTIGMINE BROMIDE
     Indication: MYASTHENIC SYNDROME
     Route: 065
     Dates: start: 2018

REACTIONS (9)
  - Ill-defined disorder [Unknown]
  - Neuropathy peripheral [Unknown]
  - Gastric disorder [Unknown]
  - Muscle fatigue [Unknown]
  - Myasthenic syndrome [Unknown]
  - Balance disorder [Unknown]
  - Product use in unapproved indication [Unknown]
  - Disease progression [Unknown]
  - Ankylosing spondylitis [Unknown]

NARRATIVE: CASE EVENT DATE: 2018
